FAERS Safety Report 19917509 (Version 1)
Quarter: 2021Q4

REPORT INFORMATION
  Report Type: Spontaneous
  Country: US (occurrence: US)
  Receive Date: 20211005
  Receipt Date: 20211005
  Transmission Date: 20220303
  Serious: No
  Sender: FDA-Public Use
  Company Number: US-SUN PHARMACEUTICAL INDUSTRIES LTD-2021R1-293144

PATIENT
  Sex: Female
  Weight: 55.34 kg

DRUGS (5)
  1. LORAZEPAM [Suspect]
     Active Substance: LORAZEPAM
     Indication: Anxiety
     Dosage: 2 MILLIGRAM, QD MORNING
     Route: 065
  2. LAMOTRIGINE [Concomitant]
     Active Substance: LAMOTRIGINE
     Indication: Bipolar I disorder
     Dosage: 200 MILLIGRAM, QD AT BED TIME
     Route: 065
     Dates: start: 2020
  3. LAMOTRIGINE [Concomitant]
     Active Substance: LAMOTRIGINE
     Indication: Anxiety
  4. PROZAC [Concomitant]
     Active Substance: FLUOXETINE HYDROCHLORIDE
     Indication: Bipolar I disorder
     Dosage: 40 MILLIGRAM, QD IN MORNING
     Route: 065
     Dates: start: 2020
  5. PROZAC [Concomitant]
     Active Substance: FLUOXETINE HYDROCHLORIDE
     Indication: Anxiety

REACTIONS (1)
  - Drug ineffective [Unknown]
